FAERS Safety Report 8312006-0 (Version None)
Quarter: 2012Q2

REPORT INFORMATION
  Report Type: 
  Country: None (occurrence: None)
  Receive Date: 20120425
  Receipt Date: 20120420
  Transmission Date: 20120825
  Serious: No
  Sender: FDA-Public Use
  Company Number: US-PFIZER INC-2012098644

PATIENT
  Sex: Female
  Weight: 64.853 kg

DRUGS (2)
  1. XANAX [Suspect]
     Indication: BIPOLAR DISORDER
     Dosage: 1 MG, DAILY
     Dates: start: 20110101, end: 20120401
  2. EFFEXOR XR [Concomitant]
     Indication: DEPRESSION
     Dosage: 75 MG, DAILY

REACTIONS (2)
  - PANIC ATTACK [None]
  - LOCALISED INFECTION [None]
